FAERS Safety Report 7108208-1 (Version None)
Quarter: 2010Q4

REPORT INFORMATION
  Report Type: 
  Country: None (occurrence: None)
  Receive Date: 20101117
  Receipt Date: 20101104
  Transmission Date: 20110411
  Serious: Yes (Hospitalization, Other)
  Sender: FDA-Public Use
  Company Number: PHHY2010FR54973

PATIENT
  Sex: Male

DRUGS (1)
  1. TASIGNA [Suspect]
     Indication: CHRONIC MYELOID LEUKAEMIA
     Dosage: 800 MG DAILY
     Route: 048
     Dates: start: 20090501, end: 20100901

REACTIONS (7)
  - ALOPECIA [None]
  - DERMATOMYOSITIS [None]
  - LICHENOID KERATOSIS [None]
  - MUSCLE ATROPHY [None]
  - PYREXIA [None]
  - SKIN LESION [None]
  - SKIN NECROSIS [None]
